FAERS Safety Report 4979296-3 (Version None)
Quarter: 2006Q2

REPORT INFORMATION
  Report Type: 
  Country: None (occurrence: None)
  Receive Date: 20060418
  Receipt Date: 20060407
  Transmission Date: 20061013
  Serious: Yes (Hospitalization)
  Sender: FDA-Public Use
  Company Number: FR200604001654

PATIENT
  Age: 56 Year
  Sex: Female

DRUGS (4)
  1. ZYPREXA [Suspect]
     Indication: PSYCHOTIC DISORDER
     Dosage: 7.5 MG, 2/D, ORAL
     Route: 048
     Dates: start: 20040101
  2. PRAZEPAM [Concomitant]
  3. PAROXETINE HYDROCHLORIDE [Concomitant]
  4. LEPTICUR (TROPATEPINE HYDROCHLORIDE) [Concomitant]

REACTIONS (1)
  - NEUROLEPTIC MALIGNANT SYNDROME [None]
